FAERS Safety Report 8912096 (Version 2)
Quarter: 2013Q1

REPORT INFORMATION
  Report Type: Spontaneous
  Country: US (occurrence: US)
  Receive Date: 20121116
  Receipt Date: 20130128
  Transmission Date: 20140127
  Serious: Yes (Hospitalization, Other)
  Sender: FDA-Public Use
  Company Number: US-PFIZER INC-2012282986

PATIENT
  Age: 89 Year
  Sex: Male

DRUGS (3)
  1. AMOXICILLIN TRIHYDRATE, CLAVULANIC ACID [Suspect]
     Indication: APPENDICECTOMY
     Dosage: UNK
     Route: 048
  2. PIPERACILLIN/TAZOBACTAM [Suspect]
     Indication: APPENDICECTOMY
     Dosage: UNK
     Route: 042
  3. NITROFURANTOIN [Suspect]
     Indication: APPENDICECTOMY
     Dosage: UNK
     Route: 065

REACTIONS (5)
  - Diarrhoea [Recovered/Resolved]
  - Staphylococcal infection [Recovered/Resolved]
  - Malaise [Recovered/Resolved]
  - Decreased appetite [Recovered/Resolved]
  - Weight decreased [Recovered/Resolved]
